FAERS Safety Report 6594274-9 (Version None)
Quarter: 2010Q1

REPORT INFORMATION
  Report Type: 
  Country: None (occurrence: None)
  Receive Date: 20100222
  Receipt Date: 20100215
  Transmission Date: 20100710
  Serious: Yes (Hospitalization)
  Sender: FDA-Public Use
  Company Number: JP-SANOFI-AVENTIS-F01200900069

PATIENT
  Age: 76 Year
  Sex: Female
  Weight: 51 kg

DRUGS (7)
  1. CLOPIDOGREL BISULFATE [Suspect]
     Indication: LACUNAR INFARCTION
     Route: 048
     Dates: start: 20080930
  2. CRESTOR [Concomitant]
     Route: 048
  3. AMARYL [Concomitant]
     Indication: DIABETES MELLITUS
     Route: 048
  4. ARICEPT [Concomitant]
     Indication: DEMENTIA
     Route: 048
  5. LENDORMIN [Concomitant]
     Indication: INSOMNIA
     Route: 048
  6. OMEPRAZOLE [Concomitant]
     Route: 048
     Dates: start: 20081009, end: 20081205
  7. HI-Z [Concomitant]
     Route: 048

REACTIONS (2)
  - HYPOAESTHESIA [None]
  - MUSCULAR WEAKNESS [None]
